FAERS Safety Report 5531040-7 (Version None)
Quarter: 2007Q4

REPORT INFORMATION
  Report Type: 
  Country: None (occurrence: None)
  Receive Date: 20071130
  Receipt Date: 20071122
  Transmission Date: 20080405
  Serious: Yes (Other)
  Sender: FDA-Public Use
  Company Number: IT-ABBOTT-07P-083-0425953-00

PATIENT
  Age: 76 Year
  Sex: Female

DRUGS (1)
  1. DEPAKENE [Suspect]
     Indication: DRUG USE FOR UNKNOWN INDICATION
     Route: 048
     Dates: start: 20030101, end: 20030101

REACTIONS (4)
  - BALANCE DISORDER [None]
  - CONFUSIONAL STATE [None]
  - DEPRESSION [None]
  - WRONG DRUG ADMINISTERED [None]
